FAERS Safety Report 5616657-3 (Version None)
Quarter: 2008Q1

REPORT INFORMATION
  Report Type: 
  Country: None (occurrence: None)
  Receive Date: 20080206
  Receipt Date: 20080206
  Transmission Date: 20080703
  Serious: No
  Sender: FDA-Public Use
  Company Number: None

PATIENT
  Sex: Male
  Weight: 98.4 kg

DRUGS (1)
  1. ZYPREXA [Suspect]
     Dosage: 15 MG  QHS  PO  3-4 YEARS
     Route: 048

REACTIONS (1)
  - DIABETES MELLITUS [None]
